FAERS Safety Report 17166961 (Version 1)
Quarter: 2019Q4

REPORT INFORMATION
  Report Type: Spontaneous
  Country: CN (occurrence: CN)
  Receive Date: 20191217
  Receipt Date: 20191217
  Transmission Date: 20200122
  Serious: Yes (Death)
  Sender: FDA-Public Use
  Company Number: CN-EXELIXIS-CABO-19026084

PATIENT
  Age: 57 Year
  Sex: Male

DRUGS (6)
  1. CABOMETYX [Suspect]
     Active Substance: CABOZANTINIB S-MALATE
     Indication: CHOLANGIOCARCINOMA
     Dosage: 80 MG, BID
     Route: 048
  2. CABOMETYX [Suspect]
     Active Substance: CABOZANTINIB S-MALATE
     Dosage: 80 MG, QD (ALTERNATIVELY TREATED WITH AXITINIB EVERY MONTH)
  3. LENVATINIB [Suspect]
     Active Substance: LENVATINIB
     Indication: CHOLANGIOCARCINOMA
     Dosage: 12 MG, QD
  4. PEMBROLIZUMAB. [Suspect]
     Active Substance: PEMBROLIZUMAB
     Indication: CHOLANGIOCARCINOMA
     Dosage: 200 MG PER 3 WEEKS) FOR 3 MONTHS
  5. AXITINIB [Suspect]
     Active Substance: AXITINIB
     Indication: CHOLANGIOCARCINOMA
     Dosage: 10 MG, BID  (ALTERNATIVELY TREATED WITH CABOMETYX EVERY MONTH)
  6. OLAPARIB. [Suspect]
     Active Substance: OLAPARIB
     Indication: CHOLANGIOCARCINOMA
     Dosage: 400 MG, BID

REACTIONS (5)
  - Cachexia [Fatal]
  - Biliary tract infection [Fatal]
  - Malignant neoplasm progression [Unknown]
  - Overdose [Unknown]
  - Off label use [Unknown]
